FAERS Safety Report 9204690 (Version 3)
Quarter: 2013Q2

REPORT INFORMATION
  Report Type: Spontaneous
  Country: US (occurrence: None)
  Receive Date: 20130329
  Receipt Date: 20130614
  Transmission Date: 20140414
  Serious: Yes (Other)
  Sender: FDA-Public Use
  Company Number: AUR-APL-2013-02580

PATIENT
  Age: 84 Year
  Sex: Female
  Weight: 74.83 kg

DRUGS (23)
  1. LOSARTAN [Suspect]
     Indication: HYPERTENSION
  2. SIMVASTATIN [Suspect]
     Indication: BLOOD CHOLESTEROL INCREASED
  3. LIPITOR [Suspect]
     Indication: BLOOD CHOLESTEROL INCREASED
     Dosage: 1X/DAY
     Dates: start: 2003
  4. PRAVASTATIN SODIUM [Suspect]
     Indication: BLOOD CHOLESTEROL INCREASED
  5. MULTIVITAMINS [Concomitant]
     Indication: BLOOD CHOLESTEROL INCREASED
  6. COZAAR [Concomitant]
  7. SPIRONOLACTONE [Concomitant]
  8. METOPROLOL [Concomitant]
  9. OMEPRAZOLE [Concomitant]
  10. JANUVIA [Concomitant]
  11. METFORMIN [Concomitant]
  12. GLYBURIDE [Concomitant]
  13. BABY ASPIRIN [Concomitant]
  14. VITAMIN D (ERGOCALCIFEROL) [Concomitant]
  15. FISH OIL (FISH OIL) [Concomitant]
  16. FLAXSEED [Concomitant]
  17. HYDROCHLOROTHIAZIDE [Concomitant]
  18. KLONOPIN (CLONAZEPAM) (TABLETS) [Concomitant]
  19. LEVOTHYROXINE [Concomitant]
  20. LOPRESSOR (METOPROLOL TARTRATE) [Concomitant]
  21. PROTONIX [Concomitant]
  22. VITAMIN D3 (COLECALCIFEROL) [Concomitant]
  23. ZOCOR [Suspect]
     Route: 048

REACTIONS (13)
  - Hypertension [None]
  - Cardiac operation [None]
  - Diabetes mellitus [None]
  - Thyroid disorder [None]
  - Knee operation [None]
  - Road traffic accident [None]
  - Hypoacusis [None]
  - Drug hypersensitivity [None]
  - Lip blister [None]
  - Drug ineffective [None]
  - Wrong technique in drug usage process [None]
  - Myalgia [None]
  - Arthralgia [None]
